FAERS Safety Report 10221698 (Version 1)
Quarter: 2014Q2

REPORT INFORMATION
  Report Type: Spontaneous
  Country: US (occurrence: US)
  Receive Date: 20140606
  Receipt Date: 20140606
  Transmission Date: 20141212
  Serious: No
  Sender: FDA-Public Use
  Company Number: US-PFIZER INC-2014155714

PATIENT
  Sex: Female

DRUGS (2)
  1. ADVIL [Suspect]
     Dosage: UNK
  2. IBUPROFEN [Suspect]
     Dosage: UNK

REACTIONS (2)
  - Haematoma [Unknown]
  - Mouth haemorrhage [Unknown]
